FAERS Safety Report 16420065 (Version 1)
Quarter: 2019Q2

REPORT INFORMATION
  Report Type: Spontaneous
  Country: US (occurrence: US)
  Receive Date: 20190612
  Receipt Date: 20190612
  Transmission Date: 20190711
  Serious: Yes (Other)
  Sender: FDA-Public Use
  Company Number: US-ENDO PHARMACEUTICALS INC-2018-040811

PATIENT
  Age: 8 Year
  Sex: Female
  Weight: 39.6 kg

DRUGS (3)
  1. SUPPRELIN LA [Suspect]
     Active Substance: HISTRELIN ACETATE
     Dosage: 50 MG, EVERY 1 TO 2 YEARS
     Route: 058
     Dates: start: 20190222
  2. MULTIVITAMIN                       /07504101/ [Concomitant]
     Active Substance: VITAMINS
     Indication: PRODUCT USED FOR UNKNOWN INDICATION
     Dosage: 2 GUMMIES, DAILY
     Route: 048
  3. SUPPRELIN LA [Suspect]
     Active Substance: HISTRELIN ACETATE
     Indication: PRECOCIOUS PUBERTY
     Dosage: 50 MG, EVERY 1 TO 2 YEARS
     Route: 058
     Dates: start: 20180622, end: 20190123

REACTIONS (7)
  - Implant site erythema [Unknown]
  - Wound infection pseudomonas [Recovering/Resolving]
  - Device extrusion [Unknown]
  - Wound dehiscence [Unknown]
  - Implant site infection [Recovered/Resolved]
  - Medical device site scab [Recovered/Resolved]
  - Implant site fibrosis [Unknown]

NARRATIVE: CASE EVENT DATE: 201807
